FAERS Safety Report 6186340-7 (Version None)
Quarter: 2009Q2

REPORT INFORMATION
  Report Type: 
  Country: None (occurrence: None)
  Receive Date: 20090511
  Receipt Date: 20090501
  Transmission Date: 20091009
  Serious: Yes (Other)
  Sender: FDA-Public Use
  Company Number: CA-ABBOTT-09P-028-0569219-03

PATIENT
  Sex: Male
  Weight: 70 kg

DRUGS (8)
  1. HUMIRA [Suspect]
     Indication: RHEUMATOID ARTHRITIS
     Route: 058
     Dates: start: 20010405, end: 20090325
  2. METHOTREXATE [Concomitant]
     Indication: RHEUMATOID ARTHRITIS
     Route: 048
     Dates: start: 19920615, end: 20090325
  3. CILAZAPRIL [Concomitant]
     Indication: HYPERTENSION
     Route: 048
     Dates: start: 20010618
  4. HYDROCHLOROTHIAZIDE [Concomitant]
     Indication: HYPERTENSION
     Route: 048
     Dates: start: 19860414
  5. SLOW-K [Concomitant]
     Indication: HYPERTENSION
     Route: 048
     Dates: start: 19860414
  6. AMITRIPTLINE HYDROCHLORIDE TAB [Concomitant]
     Indication: FIBROMYALGIA
     Route: 048
     Dates: start: 19920825
  7. MISOPROSTOL [Concomitant]
     Indication: PROPHYLAXIS AGAINST GASTROINTESTINAL ULCER
     Route: 048
     Dates: start: 19960129
  8. ACETYLSALICYLIC ACID [Concomitant]
     Indication: CARDIOVASCULAR EVENT PROPHYLAXIS
     Route: 048
     Dates: start: 20081121

REACTIONS (1)
  - LUNG ADENOCARCINOMA [None]
